FAERS Safety Report 10466894 (Version 2)
Quarter: 2014Q3

REPORT INFORMATION
  Report Type: Spontaneous
  Country: JP (occurrence: JP)
  Receive Date: 20140922
  Receipt Date: 20140922
  Transmission Date: 20150326
  Serious: Yes (Hospitalization, Other)
  Sender: FDA-Public Use
  Company Number: JP-BAYER-2013-146885

PATIENT
  Age: 68 Year
  Sex: Male
  Weight: 64 kg

DRUGS (11)
  1. FUROSEMIDE. [Concomitant]
     Active Substance: FUROSEMIDE
     Dosage: DAILY DOSE 40 MG
     Route: 048
  2. NOVORAPID [Concomitant]
     Active Substance: INSULIN ASPART
     Dosage: DAILY DOSE 31 U
  3. NEXIUM [Concomitant]
     Active Substance: ESOMEPRAZOLE MAGNESIUM
     Dosage: DAILY DOSE 20 MG
     Route: 048
  4. LANTUS [Concomitant]
     Active Substance: INSULIN GLARGINE
     Dosage: 6 U, HS
  5. LYRICA [Concomitant]
     Active Substance: PREGABALIN
     Dosage: DAILY DOSE 600 MG
     Route: 048
  6. JANUVIA [Concomitant]
     Active Substance: SITAGLIPTIN PHOSPHATE
     Dosage: 50 MG, OM
     Route: 048
  7. LOXOPROFEN [Concomitant]
     Active Substance: LOXOPROFEN
     Dosage: DAILY DOSE 180 MG
     Route: 048
  8. STIVARGA [Suspect]
     Active Substance: REGORAFENIB
     Indication: COLON CANCER
  9. SPIRONOLACTONE. [Concomitant]
     Active Substance: SPIRONOLACTONE
     Dosage: 25 MG, OM
     Route: 048
  10. STIVARGA [Suspect]
     Active Substance: REGORAFENIB
     Indication: RECTAL CANCER
     Dosage: 160 MG, QD
     Route: 048
     Dates: start: 20131009, end: 20140518
  11. WHITE PETROLEUM [Concomitant]
     Active Substance: PETROLATUM
     Dosage: UNK
     Route: 061

REACTIONS (5)
  - Oedema [Recovering/Resolving]
  - Interstitial lung disease [Recovering/Resolving]
  - Palmar-plantar erythrodysaesthesia syndrome [Recovering/Resolving]
  - Interstitial lung disease [Recovering/Resolving]
  - Protein total decreased [Unknown]

NARRATIVE: CASE EVENT DATE: 20131109
